FAERS Safety Report 24451621 (Version 2)
Quarter: 2024Q4

REPORT INFORMATION
  Report Type: Spontaneous
  Country: US (occurrence: US)
  Receive Date: 20241017
  Receipt Date: 20241203
  Transmission Date: 20250114
  Serious: No
  Sender: BLUEPRINT MEDICINES
  Company Number: US-Blueprint Medicines Corporation-5063

PATIENT
  Age: 26 Year
  Sex: Female

DRUGS (1)
  1. AYVAKIT [Suspect]
     Active Substance: AVAPRITINIB
     Indication: Diffuse cutaneous mastocytosis
     Route: 065
     Dates: start: 20240704

REACTIONS (6)
  - Vaginal haemorrhage [Unknown]
  - Menstrual disorder [Unknown]
  - Abdominal pain [Unknown]
  - Infection [Unknown]
  - Rash erythematous [Unknown]
  - Mastocytosis [Unknown]

NARRATIVE: CASE EVENT DATE: 20241001
